FAERS Safety Report 20114805 (Version 2)
Quarter: 2022Q1

REPORT INFORMATION
  Report Type: Spontaneous
  Country: US (occurrence: US)
  Receive Date: 20211125
  Receipt Date: 20220223
  Transmission Date: 20220423
  Serious: No
  Sender: FDA-Public Use
  Company Number: US-SA-SAC20211118000580

PATIENT
  Age: 31 Year
  Sex: Female

DRUGS (1)
  1. DUPIXENT [Suspect]
     Active Substance: DUPILUMAB
     Dosage: 300 MG, OTHER
     Route: 058
     Dates: start: 202108

REACTIONS (3)
  - Injection site erythema [Unknown]
  - Eye irritation [Unknown]
  - Eye pruritus [Unknown]

NARRATIVE: CASE EVENT DATE: 20210901
